FAERS Safety Report 7681538-0 (Version None)
Quarter: 2011Q3

REPORT INFORMATION
  Report Type: 
  Country: None (occurrence: None)
  Receive Date: 20110812
  Receipt Date: 20110809
  Transmission Date: 20111222
  Serious: Yes (Death, Hospitalization)
  Sender: FDA-Public Use
  Company Number: PHHY2011BR71983

PATIENT
  Sex: Female

DRUGS (7)
  1. VERAPAMIL [Concomitant]
     Indication: HYPERTENSION
     Dosage: 2 TABLET DAILY
     Route: 048
  2. PARATAN [Concomitant]
     Indication: PAIN
     Dosage: 1 DF, UNK
  3. CILOSTAZOL [Concomitant]
     Indication: HYPERTENSION
     Dosage: 1 TABLET DAILY
     Route: 048
  4. ASPIRIN [Concomitant]
     Dosage: 1 TABLET DAILY
     Route: 048
  5. DIOVAN [Suspect]
     Indication: HYPERTENSION
     Dosage: 1 TABLET DAILY
     Route: 048
  6. METOCLOPRAMIDE HYDROCHLORIDE [Concomitant]
     Indication: VOMITING
     Dosage: 1 DF, UNK
     Route: 048
  7. HYGROTON [Concomitant]
     Indication: HYPERTENSION
     Dosage: 1 DF, DAILY
     Route: 048

REACTIONS (16)
  - CHRONIC OBSTRUCTIVE PULMONARY DISEASE [None]
  - DYSPNOEA [None]
  - WOUND [None]
  - ABNORMAL FAECES [None]
  - SENSITISATION [None]
  - ANAEMIA [None]
  - TEARFULNESS [None]
  - SEPTIC SHOCK [None]
  - BRONCHOPNEUMONIA [None]
  - PULMONARY OEDEMA [None]
  - CARDIOVASCULAR DISORDER [None]
  - CARDIAC FAILURE [None]
  - PNEUMONIA [None]
  - WOUND COMPLICATION [None]
  - HAEMORRHAGE [None]
  - BLOOD PRESSURE ABNORMAL [None]
